FAERS Safety Report 9041929 (Version 1)
Quarter: 2013Q1

REPORT INFORMATION
  Report Type: Report from Study
  Country: US (occurrence: US)
  Receive Date: 20130129
  Receipt Date: 20130129
  Transmission Date: 20140127
  Serious: Yes (Hospitalization)
  Sender: FDA-Public Use
  Company Number: US-ABBOTT-12P-163-0901656-00

PATIENT
  Age: 42 Year
  Sex: Male
  Weight: 74.91 kg

DRUGS (4)
  1. HUMIRA 40 MG/0.8 ML PEN [Suspect]
     Indication: CROHN^S DISEASE
     Dates: start: 2009, end: 2010
  2. HUMIRA 40 MG/0.8 ML PEN [Suspect]
     Dates: start: 2010, end: 201010
  3. PREDNISONE [Concomitant]
     Indication: CROHN^S DISEASE
  4. 6-MP [Concomitant]
     Indication: CROHN^S DISEASE
     Dates: start: 201011

REACTIONS (2)
  - Small intestinal resection [Recovered/Resolved]
  - Crohn^s disease [Unknown]
